FAERS Safety Report 15304763 (Version 1)
Quarter: 2018Q3

REPORT INFORMATION
  Report Type: Spontaneous
  Country: DE (occurrence: DE)
  Receive Date: 20180821
  Receipt Date: 20180821
  Transmission Date: 20181010
  Serious: Yes (Hospitalization, Other)
  Sender: FDA-Public Use
  Company Number: DE-SUN PHARMACEUTICAL INDUSTRIES LTD-2018R1-181905

PATIENT
  Age: 34 Year
  Sex: Male

DRUGS (21)
  1. OLANZAPINE. [Suspect]
     Active Substance: OLANZAPINE
     Dosage: 20 MG, QD
     Route: 048
     Dates: start: 20170812, end: 20170814
  2. DIAZEPAM. [Suspect]
     Active Substance: DIAZEPAM
     Dosage: 60 MG, DAILY
     Route: 048
     Dates: start: 20170907, end: 20170909
  3. DIAZEPAM. [Suspect]
     Active Substance: DIAZEPAM
     Dosage: 40 MG, DAILY
     Route: 048
     Dates: start: 20170804, end: 20170825
  4. ZUCLOPENTHIXOL [Suspect]
     Active Substance: ZUCLOPENTHIXOL
     Indication: PRODUCT USED FOR UNKNOWN INDICATION
     Dosage: 150 MG, QD
     Route: 048
     Dates: start: 20170821
  5. AKINETON [Concomitant]
     Active Substance: BIPERIDEN HYDROCHLORIDE
     Indication: PRODUCT USED FOR UNKNOWN INDICATION
     Dosage: 4 MG, DAILY
     Route: 048
     Dates: start: 20170808, end: 20170910
  6. ZUCLOPENTHIXOL [Concomitant]
     Active Substance: ZUCLOPENTHIXOL
     Indication: PRODUCT USED FOR UNKNOWN INDICATION
     Dosage: 200 MG, DAILY
     Route: 048
     Dates: start: 20170822, end: 20170910
  7. ABILIFY [Suspect]
     Active Substance: ARIPIPRAZOLE
     Indication: PRODUCT USED FOR UNKNOWN INDICATION
     Dosage: 30 MG, OM, FOR WEEKS
     Route: 048
     Dates: end: 20170910
  8. CLOZAPIN [Suspect]
     Active Substance: CLOZAPINE
     Indication: PRODUCT USED FOR UNKNOWN INDICATION
     Dosage: 150 MG, QD
     Route: 048
     Dates: start: 20170910
  9. DIAZEPAM. [Suspect]
     Active Substance: DIAZEPAM
     Dosage: 20 MG, QD
     Route: 048
     Dates: start: 20170803, end: 20170803
  10. LITHIUM APOGEPHA [Concomitant]
     Active Substance: LITHIUM CARBONATE
     Dosage: 450 MG, DAILY
     Route: 048
     Dates: start: 20170829
  11. OLANZAPINE. [Suspect]
     Active Substance: OLANZAPINE
     Dosage: 10 MG, QD
     Route: 048
     Dates: start: 20170810, end: 20170811
  12. CLOZAPIN [Suspect]
     Active Substance: CLOZAPINE
     Dosage: 25 MG, DAILY
     Route: 048
     Dates: start: 20170906, end: 20170907
  13. DIAZEPAM. [Suspect]
     Active Substance: DIAZEPAM
     Indication: PRODUCT USED FOR UNKNOWN INDICATION
     Dosage: 40 MG, DAILY
     Route: 048
     Dates: start: 20170910
  14. CLOZAPIN [Suspect]
     Active Substance: CLOZAPINE
     Dosage: 50 MG, QD
     Route: 048
     Dates: start: 20170908
  15. DIAZEPAM. [Suspect]
     Active Substance: DIAZEPAM
     Dosage: 55 MG, DAILY
     Route: 048
     Dates: start: 20170906
  16. DIAZEPAM. [Suspect]
     Active Substance: DIAZEPAM
     Dosage: 50 MG, DAILY
     Route: 048
     Dates: start: 20170826, end: 20170905
  17. CLEXANE [Concomitant]
     Active Substance: ENOXAPARIN SODIUM
     Indication: ANTICOAGULANT THERAPY
     Dosage: 0.6 IU, DAILY
     Route: 058
     Dates: start: 20170809
  18. LITHIUM APOGEPHA [Concomitant]
     Active Substance: LITHIUM CARBONATE
     Dosage: 900 MG, DAILY
     Route: 048
     Dates: start: 20170830, end: 20170905
  19. OLANZAPINE. [Suspect]
     Active Substance: OLANZAPINE
     Indication: PRODUCT USED FOR UNKNOWN INDICATION
     Dosage: 30 MG, QD
     Route: 048
     Dates: start: 20170815, end: 20170910
  20. CLOZAPIN [Suspect]
     Active Substance: CLOZAPINE
     Dosage: 100 MG, QD
     Route: 048
     Dates: start: 20170909
  21. LITHIUM APOGEPHA [Concomitant]
     Active Substance: LITHIUM CARBONATE
     Indication: PRODUCT USED FOR UNKNOWN INDICATION
     Dosage: 1350 MG, DAILY
     Route: 048
     Dates: start: 20170906, end: 20170910

REACTIONS (5)
  - Dysphagia [Recovered/Resolved]
  - Pneumonia aspiration [Recovered/Resolved]
  - Respiratory failure [Recovered/Resolved]
  - Salivary hypersecretion [Recovered/Resolved]
  - Respiratory failure [Recovered/Resolved]

NARRATIVE: CASE EVENT DATE: 20170909
